FAERS Safety Report 24703717 (Version 3)
Quarter: 2024Q4

REPORT INFORMATION
  Report Type: Report from Study
  Country: DE (occurrence: DE)
  Receive Date: 20241206
  Receipt Date: 20241231
  Transmission Date: 20250114
  Serious: Yes (Hospitalization)
  Sender: ABBVIE
  Company Number: DE-ABBVIE-6031635

PATIENT
  Age: 57 Year
  Sex: Female

DRUGS (3)
  1. FOSCARBIDOPA\FOSLEVODOPA [Suspect]
     Active Substance: FOSCARBIDOPA\FOSLEVODOPA
     Indication: Parkinson^s disease
     Dosage: LAST ADMIN DATE: 2024
     Route: 058
     Dates: start: 20241023
  2. FOSCARBIDOPA\FOSLEVODOPA [Suspect]
     Active Substance: FOSCARBIDOPA\FOSLEVODOPA
     Dosage: FIRST ADMIN DATE: 2024?SD: 0.60 ML, CRN: 0.15 ML/H, CR: 0.19 ML/H, CRH: 0.22 ML/H, ED: 0.20 ML
     Route: 058
  3. FOSCARBIDOPA\FOSLEVODOPA [Suspect]
     Active Substance: FOSCARBIDOPA\FOSLEVODOPA
     Dosage: FIRST ADMIN DATE: 2024?SD: 0.60 ML, CRN: 0.16 ML/H, CR: 0.19 ML/H, CRH: 0.22 ML/H, ED: 0.20?DOSE ...
     Route: 058

REACTIONS (6)
  - Infusion site abscess [Recovering/Resolving]
  - Hyperkinesia [Not Recovered/Not Resolved]
  - Dermatitis [Recovering/Resolving]
  - Dyskinesia [Unknown]
  - On and off phenomenon [Recovering/Resolving]
  - Infusion site inflammation [Recovering/Resolving]

NARRATIVE: CASE EVENT DATE: 20240101
